FAERS Safety Report 5605903-8 (Version None)
Quarter: 2008Q1

REPORT INFORMATION
  Report Type: 
  Country: None (occurrence: None)
  Receive Date: 20080129
  Receipt Date: 20080115
  Transmission Date: 20080703
  Serious: Yes (Hospitalization, Other)
  Sender: FDA-Public Use
  Company Number: FR-SOLVAY-00208000328

PATIENT
  Age: 81 Year
  Sex: Female

DRUGS (2)
  1. COVERSYL [Suspect]
     Indication: HYPERTENSION
     Dosage: DAILY DOSE: 4 MILLIGRAM(S)
     Route: 048
     Dates: end: 20071205
  2. LOSARTAN POTASSIUM [Concomitant]
     Indication: HYPERTENSION
     Dosage: DAILY DOSE:  UNKNOWN
     Route: 048
     Dates: start: 20071205, end: 20071214

REACTIONS (5)
  - ABNORMAL BEHAVIOUR [None]
  - CONJUNCTIVAL HYPERAEMIA [None]
  - CONVULSION [None]
  - ECZEMA [None]
  - HALLUCINATION [None]
